FAERS Safety Report 7135444-0 (Version None)
Quarter: 2010Q4

REPORT INFORMATION
  Report Type: 
  Country: None (occurrence: None)
  Receive Date: 20101119
  Receipt Date: 20101111
  Transmission Date: 20110411
  Serious: Yes (Hospitalization)
  Sender: FDA-Public Use
  Company Number: DEP_00430_2010

PATIENT
  Age: 63 Year
  Sex: Female

DRUGS (3)
  1. GLUMETZA [Suspect]
     Indication: TYPE 2 DIABETES MELLITUS
     Dosage: 1000 MG QD, IN THE EVENING ORAL, 1000 MG QD ORAL
     Route: 048
     Dates: end: 20100101
  2. GLUMETZA [Suspect]
     Indication: TYPE 2 DIABETES MELLITUS
     Dosage: 1000 MG QD, IN THE EVENING ORAL, 1000 MG QD ORAL
     Route: 048
     Dates: start: 20100101, end: 20101106
  3. GLUMETZA [Suspect]
     Indication: TYPE 2 DIABETES MELLITUS
     Dosage: 1000 MG QD, IN THE EVENING ORAL, 1000 MG QD ORAL
     Route: 048
     Dates: start: 20101106

REACTIONS (9)
  - BLOOD GLUCOSE INCREASED [None]
  - BRAIN NEOPLASM [None]
  - DYSGEUSIA [None]
  - EAR PAIN [None]
  - HEADACHE [None]
  - NAUSEA [None]
  - NEUROPATHY PERIPHERAL [None]
  - SLEEP DISORDER DUE TO GENERAL MEDICAL CONDITION, INSOMNIA TYPE [None]
  - SPINAL CORD NEOPLASM [None]
